FAERS Safety Report 16035931 (Version 1)
Quarter: 2019Q1

REPORT INFORMATION
  Report Type: Spontaneous
  Country: US (occurrence: US)
  Receive Date: 20190206
  Receipt Date: 20190206
  Transmission Date: 20190418
  Serious: No
  Sender: FDA-Public Use
  Company Number: None

PATIENT
  Age: 66 Year
  Sex: Female
  Weight: 54.89 kg

DRUGS (1)
  1. SIMPONI ARIA [Suspect]
     Active Substance: GOLIMUMAB
     Indication: RHEUMATOID ARTHRITIS
     Dosage: INFUSE 2MG/KG(112MG) INTRAVENOUSLY OVER 30 MINUTES Q6W
     Route: 042

REACTIONS (3)
  - Ear infection [None]
  - Sinusitis [None]
  - Pharyngitis [None]
